FAERS Safety Report 5537875-9 (Version None)
Quarter: 2007Q4

REPORT INFORMATION
  Report Type: 
  Country: None (occurrence: None)
  Receive Date: 20071207
  Receipt Date: 20071126
  Transmission Date: 20080405
  Serious: Yes (Other)
  Sender: FDA-Public Use
  Company Number: CZ-PFIZER INC-2007094540

PATIENT
  Age: 48 Year
  Sex: Female

DRUGS (4)
  1. LYRICA [Suspect]
     Indication: EPILEPSY
     Route: 048
  2. LYRICA [Suspect]
     Dosage: DAILY DOSE:150MG
     Route: 048
  3. TEGRETOL [Concomitant]
     Route: 048
  4. KEPPRA [Concomitant]
     Dosage: DAILY DOSE:2500MG
     Route: 048

REACTIONS (2)
  - EPILEPSY [None]
  - VERTIGO [None]
